FAERS Safety Report 9164859 (Version 2)
Quarter: 2014Q2

REPORT INFORMATION
  Report Type: Spontaneous
  Country: US (occurrence: None)
  Receive Date: 20130226
  Receipt Date: 20140417
  Transmission Date: 20141212
  Serious: Yes (Hospitalization)
  Sender: FDA-Public Use
  Company Number: 1584023

PATIENT
  Age: 78 Year
  Sex: Female
  Weight: 89.09 kg

DRUGS (23)
  1. SODIUM CHLORIDE [Suspect]
     Indication: PRODUCT USED FOR UNKNOWN INDICATION
     Route: 041
     Dates: start: 20130115
  2. DOCETAXEL [Suspect]
     Indication: BREAST CANCER
     Route: 041
     Dates: start: 20121113, end: 20130115
  3. CYCLOPHOSPHAMIDE [Suspect]
     Indication: BREAST CANCER
  4. ASPIRIN [Concomitant]
  5. (LIPITOR) [Concomitant]
  6. (CALTRATE /00751519) [Concomitant]
  7. (CIPRO /00697201/) [Concomitant]
  8. (DILTIAZEM ER) [Concomitant]
  9. VITAMIN D [Concomitant]
  10. (LASIX /00032601/) [Concomitant]
  11. PERCOCET /00446701/) [Concomitant]
  12. (SYNTHROID) [Concomitant]
  13. (COZAAR) [Concomitant]
  14. (GLUCOPHAGE) [Concomitant]
  15. (PRILOSEC /00661201/) [Concomitant]
  16. ZOFRAN [Concomitant]
  17. COMPAZINE /00013302/) [Concomitant]
  18. (ZOLOFT) [Concomitant]
  19. (BENADRYL /00000402/) [Concomitant]
  20. ALOXI [Concomitant]
  21. (DECADRON /00016001/) [Concomitant]
  22. (HERCEPTIN) [Concomitant]
  23. (NEULASTA) [Concomitant]

REACTIONS (8)
  - Viral rash [None]
  - Drug eruption [None]
  - Rash pruritic [None]
  - Rash papular [None]
  - Rash [None]
  - Cheilitis [None]
  - Rash [None]
  - Rash [None]
